FAERS Safety Report 7903894-8 (Version None)
Quarter: 2011Q4

REPORT INFORMATION
  Report Type: 
  Country: None (occurrence: None)
  Receive Date: 20111109
  Receipt Date: 20111102
  Transmission Date: 20120403
  Serious: Yes (Other)
  Sender: FDA-Public Use
  Company Number: CN-ASTRAZENECA-2011SE65982

PATIENT
  Sex: Female

DRUGS (10)
  1. PHENOBARBITAL SODIUM 100MG CAP [Suspect]
     Route: 030
  2. LIDOCAINE [Suspect]
     Indication: ANAESTHESIA
     Route: 065
  3. ATROPINE [Suspect]
     Route: 030
  4. FENTANYL-100 [Suspect]
     Route: 042
  5. ANECTINE [Suspect]
     Indication: ANAESTHESIA
     Route: 065
  6. CISATRACURIUM BESYLATE [Suspect]
     Indication: ANAESTHESIA
     Route: 065
  7. FENTANYL-100 [Suspect]
     Indication: ANAESTHESIA
     Dosage: 2-3 UG/KG
     Route: 042
  8. PROPOFOL [Suspect]
     Dosage: 0.2 MG/KG
     Route: 042
  9. PROPOFOL [Suspect]
     Indication: ANAESTHESIA
     Dosage: 1-2 MG/KG
     Route: 042
  10. ROPIVACAINE MESYLATE [Suspect]
     Indication: ANAESTHESIA
     Dosage: 8-12 ML
     Route: 065

REACTIONS (6)
  - VOMITING [None]
  - DYSPHONIA [None]
  - HYPOXIA [None]
  - NAUSEA [None]
  - CHOKING [None]
  - COUGH [None]
